FAERS Safety Report 14034170 (Version 1)
Quarter: 2017Q4

REPORT INFORMATION
  Report Type: Spontaneous
  Country: US (occurrence: US)
  Receive Date: 20171003
  Receipt Date: 20171003
  Transmission Date: 20180321
  Serious: No
  Sender: FDA-Public Use
  Company Number: US-TEVA-700153USA

PATIENT
  Sex: Male

DRUGS (8)
  1. CLONAZEPAM. [Suspect]
     Active Substance: CLONAZEPAM
     Indication: ANXIETY
     Route: 065
     Dates: start: 20160926
  2. CLONAZEPAM. [Suspect]
     Active Substance: CLONAZEPAM
     Indication: BACK PAIN
  3. VITAMIN D [Concomitant]
     Active Substance: CHOLECALCIFEROL
  4. RAMIPRIL. [Concomitant]
     Active Substance: RAMIPRIL
  5. RAPAFLO [Concomitant]
     Active Substance: SILODOSIN
  6. FINASTERIDE. [Concomitant]
     Active Substance: FINASTERIDE
  7. CLONAZEPAM. [Suspect]
     Active Substance: CLONAZEPAM
     Indication: NERVE INJURY
  8. BABY ASPIRIN [Concomitant]
     Active Substance: ASPIRIN

REACTIONS (3)
  - Muscular weakness [Not Recovered/Not Resolved]
  - Tension [Unknown]
  - Myalgia [Unknown]
